FAERS Safety Report 18013213 (Version 1)
Quarter: 2020Q3

REPORT INFORMATION
  Report Type: Spontaneous
  Country: US (occurrence: US)
  Receive Date: 20200713
  Receipt Date: 20200713
  Transmission Date: 20201103
  Serious: No
  Sender: FDA-Public Use
  Company Number: US-PFIZER INC-2018340209

PATIENT
  Age: 57 Year
  Sex: Male
  Weight: 62.14 kg

DRUGS (3)
  1. RELPAX [Suspect]
     Active Substance: ELETRIPTAN HYDROBROMIDE
     Indication: HEADACHE
     Dosage: 40 MG, AS NEEDED (1 TABLET BY MOUTH TWICE A DAY AS NEEDED (PRN))
     Route: 048
  2. RELPAX [Suspect]
     Active Substance: ELETRIPTAN HYDROBROMIDE
     Indication: MIGRAINE
     Dosage: 12 MG, UNK
  3. RELPAX [Suspect]
     Active Substance: ELETRIPTAN HYDROBROMIDE
     Dosage: 40 MG (WITH GLASS OF WATER 3?4 TIMES A WEEK)
     Route: 048
     Dates: start: 2015

REACTIONS (2)
  - Product dispensing error [Unknown]
  - Hypoacusis [Unknown]
